FAERS Safety Report 5484582-7 (Version None)
Quarter: 2007Q4

REPORT INFORMATION
  Report Type: 
  Country: None (occurrence: None)
  Receive Date: 20071012
  Receipt Date: 20071002
  Transmission Date: 20080405
  Serious: Yes (Other)
  Sender: FDA-Public Use
  Company Number: US-PFIZER INC-2007082936

PATIENT
  Sex: Male

DRUGS (1)
  1. VARENICLINE TABLETS [Suspect]

REACTIONS (9)
  - AFFECT LABILITY [None]
  - FEAR [None]
  - FEELING ABNORMAL [None]
  - FEELING COLD [None]
  - FEELING HOT [None]
  - MOOD SWINGS [None]
  - MUSCLE TIGHTNESS [None]
  - OBSESSIVE-COMPULSIVE DISORDER [None]
  - TREMOR [None]
